FAERS Safety Report 15058160 (Version 3)
Quarter: 2018Q3

REPORT INFORMATION
  Report Type: Spontaneous
  Country: GB (occurrence: GB)
  Receive Date: 20180625
  Receipt Date: 20180831
  Transmission Date: 20181010
  Serious: Yes (Death)
  Sender: FDA-Public Use
  Company Number: GB-BEH-2018091946

PATIENT
  Age: 15 Year
  Sex: Male

DRUGS (28)
  1. PRIVIGEN [Suspect]
     Active Substance: HUMAN IMMUNOGLOBULIN G
     Dosage: 10 G, UNK
     Route: 042
     Dates: start: 20170316
  2. PRIVIGEN [Suspect]
     Active Substance: HUMAN IMMUNOGLOBULIN G
     Dosage: 5 G, UNK
     Route: 042
     Dates: start: 20170317
  3. PRIVIGEN [Suspect]
     Active Substance: HUMAN IMMUNOGLOBULIN G
     Dosage: 20 G, UNK
     Route: 042
     Dates: start: 20170413
  4. PRIVIGEN [Suspect]
     Active Substance: HUMAN IMMUNOGLOBULIN G
     Indication: INTERSTITIAL LUNG DISEASE
     Dosage: 20 G, UNK
     Route: 042
     Dates: start: 20170316
  5. PRIVIGEN [Suspect]
     Active Substance: HUMAN IMMUNOGLOBULIN G
     Dosage: 10 G, UNK
     Route: 042
     Dates: start: 20170330
  6. PRIVIGEN [Suspect]
     Active Substance: HUMAN IMMUNOGLOBULIN G
     Dosage: 20 G, UNK
     Route: 042
     Dates: start: 20170413
  7. HYDROXYCHLOROQUINE [Suspect]
     Active Substance: HYDROXYCHLOROQUINE
     Indication: INTERSTITIAL LUNG DISEASE
  8. METHOTREXATE (METHOTREXATE SODIUM) [Suspect]
     Active Substance: METHOTREXATE SODIUM
     Indication: DERMATOMYOSITIS
     Dosage: UNK, QW
     Route: 065
  9. PRIVIGEN [Suspect]
     Active Substance: HUMAN IMMUNOGLOBULIN G
     Indication: DERMATOMYOSITIS
     Dosage: 20 G, UNK
     Route: 042
     Dates: start: 20170316
  10. PRIVIGEN [Suspect]
     Active Substance: HUMAN IMMUNOGLOBULIN G
     Dosage: 20 G, UNK
     Route: 042
     Dates: start: 20170330
  11. PRIVIGEN [Suspect]
     Active Substance: HUMAN IMMUNOGLOBULIN G
     Dosage: 10 G, UNK
     Route: 042
     Dates: start: 20170412
  12. PRIVIGEN [Suspect]
     Active Substance: HUMAN IMMUNOGLOBULIN G
     Dosage: 20 G, UNK
     Route: 042
     Dates: start: 20170412
  13. CYCLOPHOSPHAMIDE. [Suspect]
     Active Substance: CYCLOPHOSPHAMIDE
  14. PRIVIGEN [Suspect]
     Active Substance: HUMAN IMMUNOGLOBULIN G
     Dosage: 20 G, UNK
     Route: 042
     Dates: start: 20170317
  15. MYCOPHENOLATE ACCORD [Suspect]
     Active Substance: MYCOPHENOLIC ACID
     Indication: INTERSTITIAL LUNG DISEASE
     Route: 065
  16. PRIVIGEN [Suspect]
     Active Substance: HUMAN IMMUNOGLOBULIN G
     Dosage: 20 G, UNK
     Route: 042
     Dates: start: 20170412
  17. METHOTREXATE (METHOTREXATE SODIUM) [Suspect]
     Active Substance: METHOTREXATE SODIUM
     Indication: INTERSTITIAL LUNG DISEASE
  18. PREDNISOLONE. [Suspect]
     Active Substance: PREDNISOLONE
     Indication: DERMATOMYOSITIS
     Route: 065
  19. PRIVIGEN [Suspect]
     Active Substance: HUMAN IMMUNOGLOBULIN G
     Dosage: 5 G, UNK
     Route: 042
     Dates: start: 20170329
  20. PRIVIGEN [Suspect]
     Active Substance: HUMAN IMMUNOGLOBULIN G
     Dosage: 20 G, UNK
     Route: 042
     Dates: start: 20170330
  21. HYDROXYCHLOROQUINE [Suspect]
     Active Substance: HYDROXYCHLOROQUINE
     Indication: DERMATOMYOSITIS
     Route: 065
  22. PREDNISOLONE. [Suspect]
     Active Substance: PREDNISOLONE
     Indication: INTERSTITIAL LUNG DISEASE
     Dosage: UNK, BI WEEKLY
     Route: 065
  23. RITUXIMAB. [Suspect]
     Active Substance: RITUXIMAB
  24. PRIVIGEN [Suspect]
     Active Substance: HUMAN IMMUNOGLOBULIN G
     Dosage: 20 G, UNK
     Route: 042
     Dates: start: 20170317
  25. PRIVIGEN [Suspect]
     Active Substance: HUMAN IMMUNOGLOBULIN G
     Dosage: 5 G, UNK
     Route: 042
     Dates: start: 20170329
  26. PRIVIGEN [Suspect]
     Active Substance: HUMAN IMMUNOGLOBULIN G
     Dosage: 20 G, UNK
     Route: 042
     Dates: start: 20170329
  27. PRIVIGEN [Suspect]
     Active Substance: HUMAN IMMUNOGLOBULIN G
     Dosage: 20 G, UNK
     Route: 042
     Dates: start: 20170329
  28. PRIVIGEN [Suspect]
     Active Substance: HUMAN IMMUNOGLOBULIN G
     Dosage: 10 G, UNK
     Route: 042
     Dates: start: 20170413

REACTIONS (1)
  - Drug ineffective for unapproved indication [Fatal]
